FAERS Safety Report 23322033 (Version 1)
Quarter: 2023Q4

REPORT INFORMATION
  Report Type: Spontaneous
  Country: US (occurrence: None)
  Receive Date: 20231220
  Receipt Date: 20231220
  Transmission Date: 20240110
  Serious: No
  Sender: FDA-Public Use
  Company Number: None

PATIENT
  Sex: Female

DRUGS (2)
  1. GLATOPA [Suspect]
     Active Substance: GLATIRAMER ACETATE
     Indication: Multiple sclerosis
     Dosage: FREQUENCY : DAILY;?
     Route: 058
     Dates: start: 201708
  2. GLATIRAMER ACET SD PFS [Concomitant]

REACTIONS (3)
  - Drug ineffective [None]
  - Multiple sclerosis [None]
  - Multiple sclerosis relapse [None]
